FAERS Safety Report 7655807-4 (Version None)
Quarter: 2011Q3

REPORT INFORMATION
  Report Type: 
  Country: None (occurrence: None)
  Receive Date: 20110801
  Receipt Date: 20110726
  Transmission Date: 20111222
  Serious: Yes (Death)
  Sender: FDA-Public Use
  Company Number: 201110936

PATIENT
  Age: 56 Year
  Sex: Male

DRUGS (1)
  1. LIORESAL [Suspect]
     Indication: MUSCLE SPASTICITY
     Dosage: 749.9 MCG, DAILY, INTRATHECAL
     Route: 039

REACTIONS (3)
  - HYPERTENSION [None]
  - CARDIAC FAILURE [None]
  - MULTIPLE SCLEROSIS [None]
